FAERS Safety Report 10731205 (Version 3)
Quarter: 2015Q3

REPORT INFORMATION
  Report Type: Spontaneous
  Country: GR (occurrence: GR)
  Receive Date: 20150122
  Receipt Date: 20150716
  Transmission Date: 20151125
  Serious: Yes (Other)
  Sender: FDA-Public Use
  Company Number: GR-MYLANLABS-2015M1000874

PATIENT

DRUGS (3)
  1. XANAX [Concomitant]
     Active Substance: ALPRAZOLAM
     Indication: DEPRESSION
     Dosage: 1 TABLET ONCE DAILY
     Route: 048
  2. ESCITALOPRAM GENERICS 10MG FILM-COATED TABLET [Suspect]
     Active Substance: ESCITALOPRAM OXALATE
     Dosage: 1.5 DF, UNK
     Route: 065
     Dates: start: 20150119
  3. ESCITALOPRAM GENERICS 10MG FILM-COATED TABLET [Suspect]
     Active Substance: ESCITALOPRAM OXALATE
     Indication: DEPRESSION
     Dosage: 1 TABLET, QD
     Route: 048
     Dates: start: 201408

REACTIONS (1)
  - Drug ineffective [Recovered/Resolved]
